FAERS Safety Report 5317903-6 (Version None)
Quarter: 2007Q2

REPORT INFORMATION
  Report Type: 
  Country: None (occurrence: None)
  Receive Date: 20070507
  Receipt Date: 20070427
  Transmission Date: 20071010
  Serious: Yes (Hospitalization, Disabling)
  Sender: FDA-Public Use
  Company Number: B0454147A

PATIENT
  Age: 60 Year
  Sex: Male

DRUGS (4)
  1. ARIXTRA [Suspect]
     Indication: DEEP VEIN THROMBOSIS
     Dosage: 7.5MG PER DAY
     Route: 058
     Dates: start: 20061124, end: 20061205
  2. PREVISCAN [Suspect]
     Indication: DEEP VEIN THROMBOSIS
     Dosage: 20MG PER DAY
     Route: 048
     Dates: start: 20061124, end: 20061204
  3. ZADITEN [Concomitant]
  4. COMPRESSION STOCKINGS [Concomitant]
     Indication: PHLEBITIS
     Dates: start: 20061124

REACTIONS (6)
  - BACK PAIN [None]
  - HYPOAESTHESIA [None]
  - MUSCLE HAEMORRHAGE [None]
  - NERVOUS SYSTEM DISORDER [None]
  - PAIN IN EXTREMITY [None]
  - SENSORY LOSS [None]
